FAERS Safety Report 8920997 (Version 3)
Quarter: 2013Q2

REPORT INFORMATION
  Report Type: Spontaneous
  Country: US (occurrence: US)
  Receive Date: 20121123
  Receipt Date: 20130417
  Transmission Date: 20140414
  Serious: No
  Sender: FDA-Public Use
  Company Number: US-009507513-1211USA008403

PATIENT
  Sex: Female

DRUGS (1)
  1. IMPLANON [Suspect]
     Dosage: UNK
     Dates: start: 20120817, end: 20121116

REACTIONS (4)
  - Device breakage [Unknown]
  - No adverse event [Unknown]
  - Product quality issue [Unknown]
  - Medical device complication [Unknown]
